FAERS Safety Report 10430141 (Version 1)
Quarter: 2014Q3

REPORT INFORMATION
  Report Type: Spontaneous
  Country: US (occurrence: None)
  Receive Date: 20140902
  Receipt Date: 20140902
  Transmission Date: 20150326
  Serious: Yes (Hospitalization)
  Sender: FDA-Public Use
  Company Number: None

PATIENT
  Age: 84 Year
  Sex: Male
  Weight: 80 kg

DRUGS (2)
  1. DABIGATRAN [Suspect]
     Active Substance: DABIGATRAN
     Indication: ATRIAL FIBRILLATION
     Dosage: MG  PO?~12/03/2013 THRU 08/07/2014
     Route: 048
     Dates: start: 20131203, end: 20140807
  2. ASPIRIN. [Suspect]
     Active Substance: ASPIRIN
     Dosage: MG     PO?~04/19/2012 THRU N/A
     Route: 048
     Dates: start: 20120419

REACTIONS (2)
  - Anaemia [None]
  - Upper gastrointestinal haemorrhage [None]

NARRATIVE: CASE EVENT DATE: 20140807
